FAERS Safety Report 11642241 (Version 6)
Quarter: 2018Q3

REPORT INFORMATION
  Report Type: Spontaneous
  Country: US (occurrence: US)
  Receive Date: 20151019
  Receipt Date: 20180918
  Transmission Date: 20181010
  Serious: Yes (Other)
  Sender: FDA-Public Use
  Company Number: US-PFIZER INC-2015334220

PATIENT
  Age: 61 Year
  Sex: Male
  Weight: 156 kg

DRUGS (19)
  1. FENTANYL. [Concomitant]
     Active Substance: FENTANYL
     Dosage: 100 MCG/HR, 1? Q 48 HOURS
  2. GLIPIZIDE. [Concomitant]
     Active Substance: GLIPIZIDE
     Dosage: UNK
  3. LYRICA [Suspect]
     Active Substance: PREGABALIN
     Indication: LUMBAR RADICULOPATHY
     Dosage: 750 MG, DAILY (3 TABS QAM, 2 TABS QHS)
     Route: 048
  4. METFORMIN HCL [Concomitant]
     Active Substance: METFORMIN HYDROCHLORIDE
     Dosage: 1000 MG, UNK
  5. METFORMIN HCL [Concomitant]
     Active Substance: METFORMIN HYDROCHLORIDE
     Dosage: 1200 MG, 2X/DAY
  6. MOBIC [Concomitant]
     Active Substance: MELOXICAM
     Dosage: 15 MG, AS NEEDED (QD)
     Route: 048
  7. MELOXICAM. [Concomitant]
     Active Substance: MELOXICAM
     Dosage: 15 MG, DAILY
  8. DULOXETINE. [Concomitant]
     Active Substance: DULOXETINE
     Dosage: 60 MG, DAILY (1 CAPSULE EVERY DAY)
  9. METANX [Concomitant]
     Active Substance: LEVOMEFOLATE CALCIUM\METHYLCOBALAMIN\PYRIDOXAL PHOSPHATE ANHYDROUS
     Dosage: UNK
  10. LISINOPRIL. [Concomitant]
     Active Substance: LISINOPRIL
     Dosage: 40 MG, QAM
  11. OXYCODONE [Concomitant]
     Active Substance: OXYCODONE
     Dosage: 20 MG, 3X/DAY (EVERY 8 HOURS)
  12. LYRICA [Suspect]
     Active Substance: PREGABALIN
     Indication: NEURITIS
     Dosage: 75 MG, UNK (1?3 TABS EVERY MORNING AND 2 TABS EVERY NIGHT)
     Route: 048
  13. LYRICA [Suspect]
     Active Substance: PREGABALIN
     Dosage: 375 MG, DAILY (75 MG, 3 TABS PO QAM AND 2 TABS PO QHS)
     Route: 048
  14. ROXICODONE [Concomitant]
     Active Substance: OXYCODONE HYDROCHLORIDE
     Indication: PAIN
     Dosage: 20 MG, EVERY 8 HOURS AS NEEDED
     Route: 048
  15. FENTANYL. [Concomitant]
     Active Substance: FENTANYL
     Dosage: 75 ?G, UNK (75 MCG/HR)
  16. LEVOTHYROXINE SODIUM. [Concomitant]
     Active Substance: LEVOTHYROXINE SODIUM
     Dosage: 75 ?G, 1X/DAY ( 1?QAM)
  17. LEVOTHYROXINE SODIUM. [Concomitant]
     Active Substance: LEVOTHYROXINE SODIUM
     Dosage: 100 UG, 1X/DAY (EVERY MORNING)
  18. METFORMIN HCL [Concomitant]
     Active Substance: METFORMIN HYDROCHLORIDE
     Dosage: 850 MG, 2X/DAY
  19. CYMBALTA [Concomitant]
     Active Substance: DULOXETINE HYDROCHLORIDE
     Dosage: 60 MG, 1X/DAY
     Route: 048

REACTIONS (26)
  - Syncope [Unknown]
  - Visual impairment [Unknown]
  - Balance disorder [Unknown]
  - Asthenia [Unknown]
  - Dizziness [Unknown]
  - Sedation [Unknown]
  - Chills [Unknown]
  - Joint stiffness [Unknown]
  - Joint swelling [Unknown]
  - Drug ineffective [Unknown]
  - Night sweats [Unknown]
  - Vertigo [Unknown]
  - Gait disturbance [Unknown]
  - Headache [Unknown]
  - Disturbance in attention [Unknown]
  - Fatigue [Unknown]
  - Hypoaesthesia [Unknown]
  - Constipation [Unknown]
  - Prescribed overdose [Unknown]
  - Pruritus [Unknown]
  - Anxiety [Unknown]
  - Depression [Unknown]
  - Pain [Unknown]
  - Seasonal allergy [Unknown]
  - Tinnitus [Unknown]
  - Arthralgia [Unknown]
